FAERS Safety Report 24955712 (Version 1)
Quarter: 2025Q1

REPORT INFORMATION
  Report Type: Spontaneous
  Country: JP (occurrence: JP)
  Receive Date: 20250211
  Receipt Date: 20250211
  Transmission Date: 20250408
  Serious: Yes (Death, Other)
  Sender: BRISTOL-MYERS SQUIBB COMPANY
  Company Number: JP-ONO-2025JP002025

PATIENT
  Age: 7 Decade
  Sex: Male
  Weight: 61.4 kg

DRUGS (1)
  1. OPDIVO [Suspect]
     Active Substance: NIVOLUMAB
     Indication: Gastric cancer
     Route: 041

REACTIONS (7)
  - Respiratory failure [Fatal]
  - Disseminated intravascular coagulation [Fatal]
  - Hypoproteinaemia [Fatal]
  - Gastrointestinal haemorrhage [Unknown]
  - Interstitial lung disease [Fatal]
  - Pleural effusion [Unknown]
  - Liver disorder [Unknown]
